FAERS Safety Report 8093233-7 (Version None)
Quarter: 2012Q1

REPORT INFORMATION
  Report Type: 
  Country: None (occurrence: None)
  Receive Date: 20120128
  Receipt Date: 20111012
  Transmission Date: 20120608
  Serious: No
  Sender: FDA-Public Use
  Company Number: US-ABBOTT-11P-163-0726063-00

PATIENT
  Sex: Female
  Weight: 87.168 kg

DRUGS (7)
  1. FLU VACCINE [Concomitant]
     Indication: PROPHYLAXIS
     Route: 030
     Dates: start: 20110921, end: 20110921
  2. HUMIRA [Suspect]
     Indication: CROHN'S DISEASE
     Route: 058
     Dates: start: 20110301, end: 20110301
  3. HUMIRA [Suspect]
     Route: 058
     Dates: start: 20110301, end: 20110301
  4. ANTIHYPOGLYCEMICS [Concomitant]
     Indication: DIABETES MELLITUS
  5. HUMIRA [Suspect]
     Route: 058
     Dates: start: 20110401
  6. ANTIDEPRESSANTS [Concomitant]
     Indication: DEPRESSION
  7. ANTIDEPRESSANTS [Concomitant]
     Indication: ANXIETY

REACTIONS (8)
  - COUGH [None]
  - ANTIVIRAL PROPHYLAXIS [None]
  - SINUS CONGESTION [None]
  - EAR CONGESTION [None]
  - PYREXIA [None]
  - THROAT IRRITATION [None]
  - UPPER RESPIRATORY TRACT INFECTION [None]
  - INSOMNIA [None]
